FAERS Safety Report 7253717-8 (Version None)
Quarter: 2011Q1

REPORT INFORMATION
  Report Type: 
  Country: None (occurrence: None)
  Receive Date: 20110129
  Receipt Date: 20100129
  Transmission Date: 20110831
  Serious: No
  Sender: FDA-Public Use
  Company Number: US-ABBOTT-10P-163-0623626-00

PATIENT
  Sex: Female
  Weight: 87.622 kg

DRUGS (11)
  1. HUMIRA [Suspect]
     Indication: ANKYLOSING SPONDYLITIS
     Route: 058
     Dates: start: 20091201
  2. SIMVASTATIN [Concomitant]
     Indication: BLOOD CHOLESTEROL
  3. ESTRADIOL [Concomitant]
     Indication: PRODUCT USED FOR UNKNOWN INDICATION
     Dosage: DAILY HRT
  4. ZOLOFT [Concomitant]
     Indication: PRODUCT USED FOR UNKNOWN INDICATION
  5. ZOLOFT [Concomitant]
     Dosage: QD
     Route: 048
  6. VITAMIN D [Concomitant]
     Indication: PRODUCT USED FOR UNKNOWN INDICATION
     Dosage: 50,000 WEEKLY
  7. CALCITRIOL [Concomitant]
     Indication: VITAMIN D
     Route: 048
  8. LEVOXYL [Concomitant]
     Indication: PRODUCT USED FOR UNKNOWN INDICATION
     Route: 048
  9. CALCIUM SUPPLEMENT W/D AND K [Concomitant]
     Indication: VITAMIN SUPPLEMENTATION
     Dosage: 2/DAY
  10. ZOLOFT [Concomitant]
     Dosage: 1/2 TAB
  11. LISINOPRIL [Concomitant]
     Indication: PRODUCT USED FOR UNKNOWN INDICATION
     Dosage: DAILY HIGH BLOOD PRESSURE

REACTIONS (6)
  - SINUS HEADACHE [None]
  - COUGH [None]
  - UPPER RESPIRATORY TRACT INFECTION [None]
  - NECK PAIN [None]
  - OROPHARYNGEAL PAIN [None]
  - FATIGUE [None]
